FAERS Safety Report 17249497 (Version 1)
Quarter: 2020Q1

REPORT INFORMATION
  Report Type: Spontaneous
  Country: BG (occurrence: BG)
  Receive Date: 20200108
  Receipt Date: 20200108
  Transmission Date: 20200409
  Serious: Yes (Other)
  Sender: FDA-Public Use
  Company Number: BG-AMGEN-BGRNI2020000933

PATIENT
  Age: 74 Year
  Sex: Female
  Weight: 68 kg

DRUGS (3)
  1. DOCETAXEL. [Suspect]
     Active Substance: DOCETAXEL
     Indication: BREAST CANCER
     Dosage: 132.7 MILLIGRAM, Q3WK
     Route: 042
     Dates: start: 20181102
  2. TRASTUZUMAB. [Suspect]
     Active Substance: TRASTUZUMAB
     Indication: BREAST CANCER
     Dosage: 450 MILLIGRAM, Q3WK
     Route: 041
     Dates: start: 20181102
  3. BERLIPRIL [Concomitant]
     Active Substance: ENALAPRIL MALEATE
     Dosage: UNK
     Route: 065
     Dates: start: 20120615

REACTIONS (1)
  - Breast cellulitis [Recovered/Resolved]

NARRATIVE: CASE EVENT DATE: 20190910
